FAERS Safety Report 17781388 (Version 1)
Quarter: 2020Q2

REPORT INFORMATION
  Report Type: Report from Study
  Country: None (occurrence: US)
  Receive Date: 20200514
  Receipt Date: 20200514
  Transmission Date: 20200714
  Serious: Yes (Hospitalization)
  Sender: FDA-Public Use
  Company Number: US-CLINIGEN GROUP PLC/ CLINIGEN HEALTHCARE LTD-US-CLGN-20-00208

PATIENT
  Sex: Female
  Weight: 82.5 kg

DRUGS (4)
  1. LN-145 [Suspect]
     Active Substance: LIFILEUCEL
     Indication: CERVIX CARCINOMA
     Route: 042
     Dates: start: 20180913, end: 20180913
  2. CYCLOPHOSPHAMIDE. [Suspect]
     Active Substance: CYCLOPHOSPHAMIDE
     Indication: CERVIX CARCINOMA
     Route: 042
     Dates: start: 20180906, end: 20180912
  3. PROLEUKIN [Suspect]
     Active Substance: ALDESLEUKIN
     Indication: CERVIX CARCINOMA
     Route: 042
     Dates: start: 20180914, end: 20180916
  4. FLUDARABINE [Suspect]
     Active Substance: FLUDARABINE PHOSPHATE
     Indication: CERVIX CARCINOMA
     Route: 042
     Dates: start: 20180908, end: 20180912

REACTIONS (1)
  - Haematuria [Recovered/Resolved]

NARRATIVE: CASE EVENT DATE: 20190110
